FAERS Safety Report 14600454 (Version 1)
Quarter: 2018Q1

REPORT INFORMATION
  Report Type: Spontaneous
  Country: DE (occurrence: DE)
  Receive Date: 20180305
  Receipt Date: 20180305
  Transmission Date: 20180509
  Serious: Yes (Other)
  Sender: FDA-Public Use
  Company Number: DE-GLAXOSMITHKLINE-DE2018033066

PATIENT
  Age: 13 Week
  Sex: Male
  Weight: 3 kg

DRUGS (1)
  1. LAMOTRIGINE. [Suspect]
     Active Substance: LAMOTRIGINE
     Indication: EPILEPSY
     Dosage: 325 [MG/D ]/ DOSAGE REDUCTION TO 300MG/D
     Route: 063

REACTIONS (2)
  - Apnoea [Recovered/Resolved]
  - Exposure via breast milk [Unknown]
